FAERS Safety Report 12058920 (Version 1)
Quarter: 2016Q1

REPORT INFORMATION
  Report Type: Spontaneous
  Country: US (occurrence: None)
  Receive Date: 20160208
  Receipt Date: 20160208
  Transmission Date: 20160526
  Serious: No
  Sender: FDA-Public Use
  Company Number: None

PATIENT
  Age: 48 Year
  Sex: Female

DRUGS (1)
  1. IBRANCE [Suspect]
     Active Substance: PALBOCICLIB
     Indication: BREAST CANCER
     Dosage: 1 CAP X 21 DAYS ONCE DAILY PO
     Route: 048
     Dates: start: 201511

REACTIONS (1)
  - Unevaluable event [None]

NARRATIVE: CASE EVENT DATE: 2015
